FAERS Safety Report 9684812 (Version 1)
Quarter: 2013Q4

REPORT INFORMATION
  Report Type: Spontaneous
  Country: JP (occurrence: JP)
  Receive Date: 20131112
  Receipt Date: 20131112
  Transmission Date: 20140711
  Serious: Yes (Other)
  Sender: FDA-Public Use
  Company Number: PHHY2013JP126431

PATIENT
  Age: 17 Year
  Sex: Male

DRUGS (8)
  1. EVEROLIMUS [Suspect]
     Indication: HEART TRANSPLANT
     Dosage: UNK
     Dates: start: 2006, end: 201103
  2. EVEROLIMUS [Suspect]
     Dosage: UNK
     Dates: start: 201207, end: 201211
  3. CICLOSPORIN [Concomitant]
     Dosage: UNK
  4. CICLOSPORIN [Concomitant]
     Dosage: UNK
     Dates: start: 2006
  5. AZATHIOPRINE [Concomitant]
     Dosage: UNK
  6. PREDNISOLONE [Concomitant]
     Dosage: UNK
  7. PREDNISOLONE [Concomitant]
     Dosage: UNK
     Dates: start: 2006
  8. MYCOPHENOLATE MOFETIL [Concomitant]
     Dosage: UNK
     Dates: start: 201103

REACTIONS (7)
  - Complications of transplanted heart [Unknown]
  - Mitral valve incompetence [Unknown]
  - Oedema peripheral [Unknown]
  - Chylothorax [Recovered/Resolved]
  - Dyspnoea exertional [Recovered/Resolved]
  - Pleural effusion [Recovering/Resolving]
  - Renal impairment [Unknown]
